FAERS Safety Report 18350198 (Version 1)
Quarter: 2020Q4

REPORT INFORMATION
  Report Type: Spontaneous
  Country: US (occurrence: US)
  Receive Date: 20201006
  Receipt Date: 20201006
  Transmission Date: 20210114
  Serious: No
  Sender: FDA-Public Use
  Company Number: US-RISING PHARMA HOLDINGS, INC.-US2020RIS000220

PATIENT
  Age: 80 Year
  Sex: Female
  Weight: 90.7 kg

DRUGS (3)
  1. PROCTOZONE-HC [Suspect]
     Active Substance: HYDROCORTISONE
     Dosage: UNK, 1X/DAY INTERNALLY AND EXTERNALLY
     Dates: start: 20200411
  2. PROCTOZONE-HC [Suspect]
     Active Substance: HYDROCORTISONE
     Indication: HAEMORRHOIDS
     Dosage: UNK, 3X/DAY INTERNALLY AND EXTERNALLY
     Dates: start: 202004, end: 20200410
  3. FLEET (GLYCERIN) [Suspect]
     Active Substance: GLYCERIN

REACTIONS (4)
  - Rectal discharge [Recovered/Resolved]
  - Product residue present [Recovered/Resolved]
  - Abnormal faeces [Recovered/Resolved]
  - Product administered at inappropriate site [Not Recovered/Not Resolved]

NARRATIVE: CASE EVENT DATE: 202004
